FAERS Safety Report 10211428 (Version 2)
Quarter: 2017Q3

REPORT INFORMATION
  Report Type: Spontaneous
  Country: FR (occurrence: FR)
  Receive Date: 20140528
  Receipt Date: 20170710
  Transmission Date: 20171127
  Serious: Yes (Other)
  Sender: FDA-Public Use
  Company Number: 7291845

PATIENT
  Age: 65 Year
  Sex: Female
  Weight: 56 kg

DRUGS (18)
  1. SEROPLEX [Suspect]
     Active Substance: ESCITALOPRAM OXALATE
     Route: 048
  2. ATARAX [Suspect]
     Active Substance: HYDROXYZINE HYDROCHLORIDE
     Route: 048
  3. MONTELUKAST [Concomitant]
     Active Substance: MONTELUKAST SODIUM
  4. METFORMIN HYDROCHLORIDE. [Suspect]
     Active Substance: METFORMIN HYDROCHLORIDE
     Route: 048
  5. ALFUZOSINE HYDROCHLORIDE [Suspect]
     Active Substance: ALFUZOSIN HYDROCHLORIDE
     Route: 048
     Dates: start: 20140106, end: 201401
  6. CRESTOR [Suspect]
     Active Substance: ROSUVASTATIN CALCIUM
     Route: 048
  7. EUPANTOL [Concomitant]
     Active Substance: PANTOPRAZOLE SODIUM
  8. SYMBICORT [Concomitant]
     Active Substance: BUDESONIDE\FORMOTEROL FUMARATE DIHYDRATE
  9. BROMAZEPAM [Concomitant]
     Active Substance: BROMAZEPAM
  10. CRESTOR [Suspect]
     Active Substance: ROSUVASTATIN CALCIUM
     Route: 048
  11. ATARAX [Suspect]
     Active Substance: HYDROXYZINE HYDROCHLORIDE
     Route: 048
  12. APROVEL [Suspect]
     Active Substance: IRBESARTAN
     Route: 048
  13. NOVOTHYROX [Suspect]
     Active Substance: LEVOTHYROXINE SODIUM
     Indication: PRODUCT USED FOR UNKNOWN INDICATION
     Route: 048
  14. AMAREL [Concomitant]
     Active Substance: GLIMEPIRIDE
  15. METEOSPASMYL [Concomitant]
     Active Substance: ALVERINE CITRATE\DIMETHICONE
  16. METFORMIN HYDROCHLORIDE. [Suspect]
     Active Substance: METFORMIN HYDROCHLORIDE
     Route: 048
  17. IMOVANE [Suspect]
     Active Substance: ZOPICLONE
     Route: 048
  18. KARDEGIC [Suspect]
     Active Substance: ASPIRIN LYSINE
     Route: 048

REACTIONS (4)
  - Nasal congestion [Recovering/Resolving]
  - Dyspepsia [Recovering/Resolving]
  - Fatigue [Recovering/Resolving]
  - Nausea [Recovering/Resolving]

NARRATIVE: CASE EVENT DATE: 20140114
